FAERS Safety Report 12649516 (Version 9)
Quarter: 2021Q2

REPORT INFORMATION
  Report Type: Spontaneous
  Country: JP (occurrence: JP)
  Receive Date: 20160812
  Receipt Date: 20210607
  Transmission Date: 20210716
  Serious: Yes (Hospitalization, Other)
  Sender: FDA-Public Use
  Company Number: JP-BIOGEN-2016BI00259261

PATIENT
  Age: 55 Year
  Sex: Male

DRUGS (16)
  1. NOVACT?M [Concomitant]
     Active Substance: FACTOR IX COMPLEX
     Indication: FACTOR IX DEFICIENCY
     Dosage: 4000 IU FOR A TOTAL OF 6 DOSES
     Route: 042
     Dates: start: 2016, end: 2016
  2. NOVACT?M [Concomitant]
     Active Substance: FACTOR IX COMPLEX
     Dosage: 2000 IU FOR A TOTAL OF 2 DOSES
     Route: 042
     Dates: start: 2012, end: 2012
  3. NU?LOTAN [Concomitant]
     Active Substance: LOSARTAN POTASSIUM
     Indication: PRODUCT USED FOR UNKNOWN INDICATION
     Dosage: 25 MG
     Route: 048
  4. ALPROLIX [Suspect]
     Active Substance: EFTRENONACOG ALFA
     Dosage: 4000 IU
     Route: 042
     Dates: start: 20160625
  5. ALPROLIX [Suspect]
     Active Substance: EFTRENONACOG ALFA
     Dosage: 4000 IU
     Route: 042
     Dates: start: 20160625
  6. NOVACT?M [Concomitant]
     Active Substance: FACTOR IX COMPLEX
     Dosage: 2000 IU FOR A TOTAL OF 2 DOSES
     Route: 042
     Dates: start: 2008, end: 2008
  7. NOVACT?M [Concomitant]
     Active Substance: FACTOR IX COMPLEX
     Dosage: 1000 IU, 1X
     Route: 042
     Dates: start: 2010, end: 2010
  8. ALPROLIX [Suspect]
     Active Substance: EFTRENONACOG ALFA
     Dosage: 4000 IU
     Route: 042
     Dates: start: 20160629
  9. NU?LOTAN [Concomitant]
     Active Substance: LOSARTAN POTASSIUM
     Dosage: 20 MG
     Route: 048
  10. ALPROLIX [Suspect]
     Active Substance: EFTRENONACOG ALFA
     Indication: FACTOR IX DEFICIENCY
     Dosage: 2000 IU
     Route: 042
     Dates: start: 20160622
  11. ALPROLIX [Suspect]
     Active Substance: EFTRENONACOG ALFA
     Indication: FACTOR IX DEFICIENCY
     Dosage: 2000 IU
     Route: 042
     Dates: start: 20160622
  12. ALPROLIX [Suspect]
     Active Substance: EFTRENONACOG ALFA
     Dosage: 4000 IU
     Route: 042
     Dates: start: 20160629
  13. CRESTOR [Concomitant]
     Active Substance: ROSUVASTATIN CALCIUM
     Indication: PRODUCT USED FOR UNKNOWN INDICATION
     Dosage: 2 MG
     Route: 048
  14. NOVACT?M [Concomitant]
     Active Substance: FACTOR IX COMPLEX
     Dosage: 1000 IU
     Route: 042
     Dates: start: 2005, end: 2005
  15. NOVACT?M [Concomitant]
     Active Substance: FACTOR IX COMPLEX
     Dosage: 2000 IU FOR A TOTAL OF 8 DOSES
     Route: 042
     Dates: start: 2009, end: 2009
  16. TRANSAMIN [Concomitant]
     Active Substance: TRANEXAMIC ACID
     Indication: PRODUCT USED FOR UNKNOWN INDICATION
     Route: 048

REACTIONS (3)
  - Anaphylactic reaction [Recovering/Resolving]
  - Factor IX inhibition [Recovered/Resolved]
  - Rash [Recovered/Resolved]

NARRATIVE: CASE EVENT DATE: 20160624
